FAERS Safety Report 11864623 (Version 1)
Quarter: 2015Q4

REPORT INFORMATION
  Report Type: Spontaneous
  Country: CH (occurrence: FR)
  Receive Date: 20151223
  Receipt Date: 20151223
  Transmission Date: 20160305
  Serious: Yes (Other)
  Sender: FDA-Public Use
  Company Number: CH-LPDUSPRD-20151048

PATIENT
  Age: 6 Year
  Sex: Male

DRUGS (1)
  1. VENOFER [Suspect]
     Active Substance: IRON SUCROSE
     Dosage: 300 MG OVER 2 HOURS
     Route: 042
     Dates: start: 20151128, end: 20151128

REACTIONS (4)
  - Serum ferritin increased [Unknown]
  - Incorrect dose administered [Unknown]
  - Overdose [Unknown]
  - Medication error [Unknown]

NARRATIVE: CASE EVENT DATE: 20151128
